FAERS Safety Report 6313786-6 (Version None)
Quarter: 2009Q3

REPORT INFORMATION
  Report Type: 
  Country: None (occurrence: None)
  Receive Date: 20090818
  Receipt Date: 20090526
  Transmission Date: 20100115
  Serious: Yes (Hospitalization, Other)
  Sender: FDA-Public Use
  Company Number: US-BRISTOL-MYERS SQUIBB COMPANY-14492805

PATIENT
  Age: 48 Year
  Sex: Male

DRUGS (3)
  1. REYATAZ [Suspect]
     Indication: ACQUIRED IMMUNODEFICIENCY SYNDROME
     Route: 048
     Dates: start: 20050901, end: 20090108
  2. NORVIR [Suspect]
     Indication: ACQUIRED IMMUNODEFICIENCY SYNDROME
     Route: 048
     Dates: start: 20050901, end: 20090108
  3. EPZICOM [Suspect]
     Indication: RETROVIRAL INFECTION
     Dates: start: 20050901

REACTIONS (1)
  - NEPHROLITHIASIS [None]
